FAERS Safety Report 9992252 (Version 1)
Quarter: 2014Q1

REPORT INFORMATION
  Report Type: Spontaneous
  Country: US (occurrence: US)
  Receive Date: 20140310
  Receipt Date: 20140310
  Transmission Date: 20141002
  Serious: No
  Sender: FDA-Public Use
  Company Number: US-ASTELLAS-2013US012808

PATIENT
  Sex: Male

DRUGS (1)
  1. XTANDI [Suspect]
     Indication: PROSTATE CANCER
     Dosage: 160 MG, ONCE DAILY
     Route: 048

REACTIONS (2)
  - Drug ineffective [Unknown]
  - Prostatic specific antigen increased [Unknown]
